FAERS Safety Report 8561212-9 (Version None)
Quarter: 2012Q3

REPORT INFORMATION
  Report Type: 
  Country: None (occurrence: None)
  Receive Date: 20120723
  Receipt Date: 20120705
  Transmission Date: 20120928
  Serious: Yes (Hospitalization)
  Sender: FDA-Public Use
  Company Number: DSA_58531-2012

PATIENT
  Sex: Female
  Weight: 61.2 kg

DRUGS (6)
  1. EPIRUBICIN [Suspect]
     Indication: BREAST CANCER
     Dosage: SEE IMAGE
     Route: 042
     Dates: start: 20091230
  2. EPIRUBICIN [Suspect]
     Indication: BREAST CANCER
     Dosage: SEE IMAGE
     Route: 042
     Dates: start: 20091202, end: 20091202
  3. FLUOROURACIL [Suspect]
     Indication: BREAST CANCER
     Dosage: SEE IMAGE
     Route: 042
     Dates: start: 20091202, end: 20091202
  4. FLUOROURACIL [Suspect]
     Indication: BREAST CANCER
     Dosage: SEE IMAGE
     Route: 042
     Dates: start: 20091230
  5. CYCLOPHOSPHAMIDE [Suspect]
     Indication: BREAST CANCER
     Dosage: SEE IMAGE
     Route: 042
     Dates: start: 20091202, end: 20091202
  6. CYCLOPHOSPHAMIDE [Suspect]
     Indication: BREAST CANCER
     Dosage: SEE IMAGE
     Route: 042
     Dates: start: 20091230

REACTIONS (1)
  - FEBRILE NEUTROPENIA [None]
